FAERS Safety Report 5132071-1 (Version None)
Quarter: 2006Q4

REPORT INFORMATION
  Report Type: 
  Country: None (occurrence: None)
  Receive Date: 20061017
  Receipt Date: 20061004
  Transmission Date: 20070319
  Serious: Yes (Death)
  Sender: FDA-Public Use
  Company Number: T200601110

PATIENT
  Sex: Male

DRUGS (1)
  1. LORCET-HD [Suspect]
     Dosage: ORAL
     Route: 048

REACTIONS (1)
  - DEATH [None]
